FAERS Safety Report 15451780 (Version 2)
Quarter: 2021Q3

REPORT INFORMATION
  Report Type: Spontaneous
  Country: FR (occurrence: FR)
  Receive Date: 20181001
  Receipt Date: 20210818
  Transmission Date: 20211014
  Serious: Yes (Hospitalization, Other)
  Sender: FDA-Public Use
  Company Number: PHHY2018FR111572

PATIENT
  Sex: Female
  Weight: 47 kg

DRUGS (2)
  1. TACROLIMUS. [Suspect]
     Active Substance: TACROLIMUS
     Indication: PROPHYLAXIS
     Dosage: 14 MG,QD
     Route: 048
     Dates: start: 20170627
  2. TACROLIMUS. [Suspect]
     Active Substance: TACROLIMUS
     Dosage: 16 MG, QD
     Route: 048
     Dates: start: 20170727

REACTIONS (6)
  - Klebsiella infection [Recovered/Resolved]
  - Bacterial pyelonephritis [Recovered/Resolved]
  - Urinary tract infection enterococcal [Recovered/Resolved]
  - Enterobacter infection [Recovered/Resolved]
  - Enterococcal infection [Recovered/Resolved]
  - Urinary tract infection [Recovered/Resolved]

NARRATIVE: CASE EVENT DATE: 20170705
